FAERS Safety Report 4963308-7 (Version None)
Quarter: 2006Q2

REPORT INFORMATION
  Report Type: 
  Country: None (occurrence: None)
  Receive Date: 20060405
  Receipt Date: 20060307
  Transmission Date: 20061013
  Serious: Yes (Life-Threatening)
  Sender: FDA-Public Use
  Company Number: JP-BRISTOL-MYERS SQUIBB COMPANY-13309885

PATIENT
  Age: 27 Year
  Sex: Female

DRUGS (4)
  1. VP-16 [Suspect]
     Indication: STEM CELL TRANSPLANT
     Route: 042
     Dates: start: 19960701
  2. PARAPLATIN [Suspect]
     Indication: STEM CELL TRANSPLANT
     Route: 042
     Dates: start: 19960701
  3. NIDRAN [Suspect]
     Indication: STEM CELL TRANSPLANT
     Route: 042
     Dates: start: 19960701, end: 19960701
  4. TESPAMIN [Suspect]
     Indication: LYMPHOMA
     Route: 042
     Dates: start: 19960701, end: 19960701

REACTIONS (3)
  - MYELODYSPLASTIC SYNDROME [None]
  - PLATELET COUNT DECREASED [None]
  - TREATMENT RELATED SECONDARY MALIGNANCY [None]
